FAERS Safety Report 6128002-8 (Version None)
Quarter: 2009Q1

REPORT INFORMATION
  Report Type: 
  Country: None (occurrence: None)
  Receive Date: 20090320
  Receipt Date: 20090320
  Transmission Date: 20090719
  Serious: Yes (Death)
  Sender: FDA-Public Use
  Company Number: None

PATIENT
  Age: 74 Year
  Sex: Male

DRUGS (13)
  1. REVLIMID [Suspect]
     Dosage: 10MG DAILY ORALLY
     Route: 048
     Dates: start: 20081101, end: 20090201
  2. ZOLPIDEM [Concomitant]
  3. FENTANYL TRANSDERMAL SYSTEM [Concomitant]
  4. HALOPERIDOL [Concomitant]
  5. HYDROMORPHONE HCL [Concomitant]
  6. POTASSIUM CHLORIDE [Concomitant]
  7. OMEPRAZOLE [Concomitant]
  8. DIGOXIN [Concomitant]
  9. AMLODIPINE BESYLATE [Concomitant]
  10. CARVEDILOL [Concomitant]
  11. THIAMINE HCL [Concomitant]
  12. DOCUSATE SODIUM [Concomitant]
  13. PROVIGIL [Concomitant]

REACTIONS (2)
  - CARDIAC DISORDER [None]
  - PAIN [None]
